FAERS Safety Report 22169006 (Version 2)
Quarter: 2023Q2

REPORT INFORMATION
  Report Type: Spontaneous
  Country: SE (occurrence: SE)
  Receive Date: 20230404
  Receipt Date: 20230413
  Transmission Date: 20230722
  Serious: Yes (Other)
  Sender: FDA-Public Use
  Company Number: SE-002147023-NVSC2023SE069441

PATIENT
  Sex: Male

DRUGS (1)
  1. LEUPROLIDE ACETATE [Suspect]
     Active Substance: LEUPROLIDE ACETATE
     Indication: Prostate cancer
     Dosage: 5 MG
     Route: 065
     Dates: start: 202212

REACTIONS (3)
  - Multiple organ dysfunction syndrome [Unknown]
  - Diarrhoea [Unknown]
  - Electrolyte imbalance [Unknown]
